FAERS Safety Report 7617184-4 (Version None)
Quarter: 2011Q3

REPORT INFORMATION
  Report Type: 
  Country: None (occurrence: None)
  Receive Date: 20110718
  Receipt Date: 20110711
  Transmission Date: 20111222
  Serious: Yes (Hospitalization)
  Sender: FDA-Public Use
  Company Number: GB-B.I. PHARMACEUTICALS,INC./RIDGEFIELD-2011-UK-00578UK

PATIENT
  Sex: Male
  Weight: 88.9 kg

DRUGS (6)
  1. ALBUTEROL [Concomitant]
     Dosage: 2 DOSES, FOUR TIMES DAILY
     Route: 055
  2. METFORMIN HCL [Concomitant]
     Dosage: 1000 MG
     Route: 048
  3. LISINOPRIL [Concomitant]
     Dosage: 5 MG
  4. SPIRIVA [Suspect]
     Indication: CHRONIC OBSTRUCTIVE PULMONARY DISEASE
     Dosage: 18 MCG
     Route: 055
     Dates: start: 20090314
  5. BUDESONIDE + FORMOTEROL [Concomitant]
     Dosage: 200 MCG
     Route: 055
  6. TADALAFIL [Concomitant]
     Dosage: AS DIRECTED

REACTIONS (2)
  - PNEUMONIA [None]
  - DYSPNOEA [None]
